FAERS Safety Report 14627664 (Version 3)
Quarter: 2018Q2

REPORT INFORMATION
  Report Type: Spontaneous
  Country: US (occurrence: US)
  Receive Date: 20180312
  Receipt Date: 20180418
  Transmission Date: 20180711
  Serious: Yes (Hospitalization)
  Sender: FDA-Public Use
  Company Number: US-GE HEALTHCARE LIFE SCIENCES-2018CSU000954

PATIENT
  Age: 56 Year
  Sex: Male
  Weight: 98.87 kg

DRUGS (4)
  1. LIDOCAINE. [Concomitant]
     Active Substance: LIDOCAINE
     Dosage: UNK, SINGLE
     Route: 014
     Dates: start: 20180206, end: 20180206
  2. MARCAINE [Concomitant]
     Active Substance: BUPIVACAINE HYDROCHLORIDE
     Dosage: UNK UNK, SINGLE
     Route: 014
     Dates: start: 20180206
  3. DEPO-MEDROL [Concomitant]
     Active Substance: METHYLPREDNISOLONE ACETATE
     Dosage: UNK, SINGLE
     Route: 014
     Dates: start: 20180206, end: 20180206
  4. OMNIPAQUE [Suspect]
     Active Substance: IOHEXOL
     Indication: ARTHRALGIA
     Dosage: UNK, SINGLE
     Route: 014
     Dates: start: 20180206, end: 20180206

REACTIONS (2)
  - Off label use [Recovered/Resolved]
  - Arthritis infective [Recovering/Resolving]

NARRATIVE: CASE EVENT DATE: 20180206
